FAERS Safety Report 23697625 (Version 1)
Quarter: 2024Q2

REPORT INFORMATION
  Report Type: Report from Study
  Country: IL (occurrence: IL)
  Receive Date: 20240402
  Receipt Date: 20240402
  Transmission Date: 20240715
  Serious: Yes (Hospitalization)
  Sender: FDA-Public Use
  Company Number: IL-Merck Healthcare KGaA-2024017411

PATIENT
  Sex: Female

DRUGS (1)
  1. EUTHYROX [Suspect]
     Active Substance: LEVOTHYROXINE SODIUM
     Indication: Product used for unknown indication
     Dosage: TOOK 50 MCG ALL WEEK.
     Dates: start: 202401

REACTIONS (3)
  - Syncope [Unknown]
  - Cerebrovascular accident [Unknown]
  - Aphasia [Unknown]
